FAERS Safety Report 9628718 (Version 1)
Quarter: 2013Q4

REPORT INFORMATION
  Report Type: Spontaneous
  Country: FI (occurrence: FI)
  Receive Date: 20131017
  Receipt Date: 20131017
  Transmission Date: 20140711
  Serious: Yes (Other)
  Sender: FDA-Public Use
  Company Number: FI-ASTRAZENECA-2013SE75460

PATIENT
  Age: 23136 Day
  Sex: Female

DRUGS (25)
  1. SEROQUEL PROLONG [Suspect]
     Indication: DEPRESSION
     Route: 048
     Dates: start: 20130320, end: 20130326
  2. SEROQUEL PROLONG [Suspect]
     Indication: PSYCHOTIC DISORDER
     Route: 048
     Dates: start: 20130320, end: 20130326
  3. SEROQUEL PROLONG [Suspect]
     Indication: MAJOR DEPRESSION
     Route: 048
     Dates: start: 20130320, end: 20130326
  4. SEROQUEL PROLONG [Suspect]
     Indication: DEPRESSION
     Dosage: KETIPINOR 25 MG TABLET, 1X1-3 PER NEED
     Route: 048
     Dates: start: 20130216, end: 20130326
  5. SEROQUEL PROLONG [Suspect]
     Indication: PSYCHOTIC DISORDER
     Dosage: KETIPINOR 25 MG TABLET, 1X1-3 PER NEED
     Route: 048
     Dates: start: 20130216, end: 20130326
  6. SEROQUEL PROLONG [Suspect]
     Indication: MAJOR DEPRESSION
     Dosage: KETIPINOR 25 MG TABLET, 1X1-3 PER NEED
     Route: 048
     Dates: start: 20130216, end: 20130326
  7. SEROQUEL PROLONG [Suspect]
     Indication: DEPRESSION
     Dosage: KETIPINOR 25 MG TABLET, 1X3 PER DAY
     Route: 048
     Dates: start: 20130216, end: 20130322
  8. SEROQUEL PROLONG [Suspect]
     Indication: PSYCHOTIC DISORDER
     Dosage: KETIPINOR 25 MG TABLET, 1X3 PER DAY
     Route: 048
     Dates: start: 20130216, end: 20130322
  9. SEROQUEL PROLONG [Suspect]
     Indication: MAJOR DEPRESSION
     Dosage: KETIPINOR 25 MG TABLET, 1X3 PER DAY
     Route: 048
     Dates: start: 20130216, end: 20130322
  10. SEROQUEL PROLONG [Suspect]
     Indication: DEPRESSION
     Dosage: KETIPINOR 25 MG TABLET, 2X3 PER DAY
     Route: 048
     Dates: start: 20130322, end: 20130326
  11. SEROQUEL PROLONG [Suspect]
     Indication: PSYCHOTIC DISORDER
     Dosage: KETIPINOR 25 MG TABLET, 2X3 PER DAY
     Route: 048
     Dates: start: 20130322, end: 20130326
  12. SEROQUEL PROLONG [Suspect]
     Indication: MAJOR DEPRESSION
     Dosage: KETIPINOR 25 MG TABLET, 2X3 PER DAY
     Route: 048
     Dates: start: 20130322, end: 20130326
  13. OMEPRAZOL [Concomitant]
     Route: 048
     Dates: start: 20130308
  14. PROPRAL [Concomitant]
     Indication: NERVOUSNESS
     Dosage: 1X1 PER NEED
     Route: 048
     Dates: start: 20130131, end: 20130529
  15. PROPRAL [Concomitant]
     Indication: PALPITATIONS
     Dosage: 1X1 PER NEED
     Route: 048
     Dates: start: 20130131, end: 20130529
  16. MICARDIS PLUS [Concomitant]
     Indication: HYPERTENSION
     Dosage: 80/12.5 MG 1X1
     Route: 048
     Dates: start: 20130219
  17. THYROXIN [Concomitant]
     Indication: HYPOTHYROIDISM
     Route: 048
  18. THYROXIN [Concomitant]
     Indication: HYPOTHYROIDISM
     Dosage: 1X1 3 D/W
     Route: 048
  19. MIRTAZAPIN [Concomitant]
     Indication: DEPRESSION
     Route: 048
     Dates: start: 20130210, end: 20130503
  20. MIRTAZAPIN [Concomitant]
     Indication: SLEEP DISORDER THERAPY
     Route: 048
     Dates: start: 20130210, end: 20130503
  21. EFEXOR [Concomitant]
     Indication: DEPRESSION
     Route: 048
     Dates: start: 20130218, end: 20130314
  22. EFEXOR [Concomitant]
     Indication: DEPRESSION
     Route: 048
     Dates: start: 20130314, end: 20130318
  23. DIAPAM [Concomitant]
     Indication: DEPRESSION
     Dosage: 1X1-3 PER NEED
     Route: 048
     Dates: start: 20130218, end: 20130314
  24. TENOX [Concomitant]
     Indication: SLEEP DISORDER THERAPY
     Route: 048
     Dates: start: 20130313, end: 20130529
  25. CYMBALTA [Concomitant]
     Indication: DEPRESSION
     Route: 048
     Dates: start: 20130322, end: 20130415

REACTIONS (1)
  - Erythema multiforme [Recovering/Resolving]
